FAERS Safety Report 20950326 (Version 1)
Quarter: 2022Q2

REPORT INFORMATION
  Report Type: Spontaneous
  Country: US (occurrence: US)
  Receive Date: 20220613
  Receipt Date: 20220613
  Transmission Date: 20220721
  Serious: Yes (Other)
  Sender: FDA-Public Use
  Company Number: US-SA-SAC20220609000873

PATIENT
  Age: 59 Year
  Sex: Male

DRUGS (16)
  1. ALPROLIX [Suspect]
     Active Substance: EFTRENONACOG ALFA
     Indication: Factor IX deficiency
     Dosage: 3000 IU ONCE A WEEK FOR PROPHY AND AS NEEDED FOR BLEEDS
     Route: 042
  2. ALPROLIX [Suspect]
     Active Substance: EFTRENONACOG ALFA
     Indication: Factor IX deficiency
     Dosage: 3000 IU ONCE A WEEK FOR PROPHY AND AS NEEDED FOR BLEEDS
     Route: 042
  3. ALPROLIX [Suspect]
     Active Substance: EFTRENONACOG ALFA
     Dosage: 500 IU ONCE A WEEK FOR PROPHY AND AS NEEDED FOR BLEEDS
     Route: 042
  4. ALPROLIX [Suspect]
     Active Substance: EFTRENONACOG ALFA
     Dosage: 500 IU ONCE A WEEK FOR PROPHY AND AS NEEDED FOR BLEEDS
     Route: 042
  5. ASPIRIN [Concomitant]
     Active Substance: ASPIRIN
  6. ATORVASTATIN [Concomitant]
     Active Substance: ATORVASTATIN
  7. FLUTICASONE [Concomitant]
     Active Substance: FLUTICASONE
  8. IMODIUM A-D [Concomitant]
     Active Substance: LOPERAMIDE HYDROCHLORIDE
     Dosage: IMODIUM A-D LIQ 1MG/7.5;,
  9. MUCINEX [Concomitant]
     Active Substance: GUAIFENESIN
  10. PANTOPRAZOLE [Concomitant]
     Active Substance: PANTOPRAZOLE
  11. PAXIL CR [Concomitant]
     Active Substance: PAROXETINE HYDROCHLORIDE
  12. PRALUENT [Concomitant]
     Active Substance: ALIROCUMAB
  13. SYNTHROID [Concomitant]
     Active Substance: LEVOTHYROXINE SODIUM
  14. TADALAFIL [Concomitant]
     Active Substance: TADALAFIL
  15. TAMSULOSIN [Concomitant]
     Active Substance: TAMSULOSIN
  16. CLOPIDOGREL [Concomitant]
     Active Substance: CLOPIDOGREL BISULFATE

REACTIONS (3)
  - Haemorrhage [Unknown]
  - Injury [Unknown]
  - Angioplasty [Unknown]

NARRATIVE: CASE EVENT DATE: 20220524
